FAERS Safety Report 8524393-9 (Version None)
Quarter: 2012Q3

REPORT INFORMATION
  Report Type: 
  Country: None (occurrence: None)
  Receive Date: 20120716
  Receipt Date: 20120716
  Transmission Date: 20120928
  Serious: No
  Sender: FDA-Public Use
  Company Number: None

PATIENT
  Age: 30 Year
  Sex: Male
  Weight: 79.2 kg

DRUGS (1)
  1. HALOPERIDOL [Suspect]
     Dosage: 2 MG ONCE IV
     Route: 042
     Dates: start: 20120316, end: 20120317

REACTIONS (1)
  - DYSAESTHESIA [None]
